FAERS Safety Report 22714561 (Version 8)
Quarter: 2024Q1

REPORT INFORMATION
  Report Type: Spontaneous
  Country: CA (occurrence: CA)
  Receive Date: 20230718
  Receipt Date: 20240227
  Transmission Date: 20240410
  Serious: Yes (Other)
  Sender: FDA-Public Use
  Company Number: CA-CELLTRION INC.-2023CA014244

PATIENT

DRUGS (8)
  1. INFLECTRA [Suspect]
     Active Substance: INFLIXIMAB-DYYB
     Indication: Crohn^s disease
     Dosage: 5 MG/KG, WEEKS 0, 2, 6 AND EVERY 8 WEEKS
     Route: 042
     Dates: start: 20230626
  2. INFLECTRA [Suspect]
     Active Substance: INFLIXIMAB-DYYB
     Dosage: 271.5 MG,  EVERY 8 WEEKS
     Route: 042
     Dates: start: 20230710
  3. INFLECTRA [Suspect]
     Active Substance: INFLIXIMAB-DYYB
     Dosage: 255.5 MG, 5MG/KG,WEEKS 0, 2, 6 AND EVERY 8 WEEKS
     Route: 042
     Dates: start: 20230809
  4. INFLECTRA [Suspect]
     Active Substance: INFLIXIMAB-DYYB
     Dosage: 5 MG/KG, WEEKS 0, 2, 6 AND EVERY 8 WEEKS (245.5MG, 8 WEEKS)
     Route: 042
     Dates: start: 20231003
  5. INFLECTRA [Suspect]
     Active Substance: INFLIXIMAB-DYYB
     Dosage: 250 MG (5 MG/KG) EVERY 6 WEEK
     Route: 042
     Dates: start: 20231116
  6. INFLECTRA [Suspect]
     Active Substance: INFLIXIMAB-DYYB
     Dosage: 250 MG (5 MG/KG) EVERY 6 WEEKS
     Route: 042
     Dates: start: 20231227
  7. INFLECTRA [Suspect]
     Active Substance: INFLIXIMAB-DYYB
     Dosage: 5 MG/KG, EVERY 6 WEEKS (238MG AFTER 7 WEEKS AND 6 DAYS)
     Route: 042
     Dates: start: 20240220
  8. AMLODIPINE BESYLATE\PERINDOPRIL ERBUMINE [Concomitant]
     Active Substance: AMLODIPINE BESYLATE\PERINDOPRIL ERBUMINE
     Dosage: UNK

REACTIONS (11)
  - Uveitis [Recovered/Resolved]
  - Condition aggravated [Recovering/Resolving]
  - Drug level decreased [Unknown]
  - Off label use [Unknown]
  - Weight decreased [Not Recovered/Not Resolved]
  - Arthralgia [Recovered/Resolved]
  - Fistula [Recovered/Resolved]
  - Eye irritation [Recovered/Resolved]
  - Blood pressure increased [Not Recovered/Not Resolved]
  - Decreased appetite [Not Recovered/Not Resolved]
  - Inappropriate schedule of product administration [Unknown]

NARRATIVE: CASE EVENT DATE: 20230101
